FAERS Safety Report 21688023 (Version 1)
Quarter: 2022Q4

REPORT INFORMATION
  Report Type: Spontaneous
  Country: FR (occurrence: FR)
  Receive Date: 20221206
  Receipt Date: 20221206
  Transmission Date: 20230113
  Serious: Yes (Life-Threatening, Hospitalization)
  Sender: FDA-Public Use
  Company Number: FR-MYLANLABS-2022M1136391

PATIENT
  Age: 1 Year
  Sex: Male

DRUGS (8)
  1. PHENYTOIN [Suspect]
     Active Substance: PHENYTOIN
     Indication: Status epilepticus
     Dosage: 15 MILLIGRAM/KILOGRAM; INTRAVENOUS (NOT SPECIFIED)
     Route: 042
  2. PHENYTOIN [Suspect]
     Active Substance: PHENYTOIN
     Dosage: 5 MILLIGRAM/KILOGRAM; AS MAINTENANCE DOSE; INTRAVENOUS (NOT SPECIFIED)
     Route: 042
  3. EPINEPHRINE [Suspect]
     Active Substance: EPINEPHRINE
     Indication: Cardiogenic shock
     Dosage: UNK; 2.3 MICROG/KG/MIN
     Route: 065
  4. NOREPINEPHRINE [Suspect]
     Active Substance: NOREPINEPHRINE
     Indication: Cardiogenic shock
     Dosage: UNK; 4.7 MICROG/KG/MIN
     Route: 065
  5. MILRINONE [Suspect]
     Active Substance: MILRINONE
     Indication: Cardiogenic shock
     Dosage: UNK; 0.7 MICROG/KG/MIN
     Route: 065
  6. DIAZEPAM [Suspect]
     Active Substance: DIAZEPAM
     Indication: Status epilepticus
     Dosage: UNK; RECEIVED 3 DOSES
     Route: 065
  7. CLONAZEPAM [Concomitant]
     Active Substance: CLONAZEPAM
     Indication: Status epilepticus
     Dosage: UNK; INTRAVENOUS (NOT SPECIFIED)
     Route: 042
  8. PHENOBARBITAL [Concomitant]
     Active Substance: PHENOBARBITAL
     Indication: Status epilepticus
     Dosage: UNK; INTRAVENOUS (NOT SPECIFIED)
     Route: 042

REACTIONS (11)
  - Overdose [Recovered/Resolved]
  - Toxicity to various agents [Recovered/Resolved]
  - Coma [Recovered/Resolved]
  - Cardiogenic shock [Recovered/Resolved]
  - Myoclonic epilepsy [Recovered/Resolved]
  - Nystagmus [Recovered/Resolved]
  - Cerebellar ataxia [Recovered/Resolved]
  - Mutism [Recovered/Resolved]
  - Cerebellar atrophy [Recovered/Resolved]
  - Cerebellar haemorrhage [Recovered/Resolved]
  - Drug ineffective [Unknown]
